FAERS Safety Report 7875918-8 (Version None)
Quarter: 2011Q4

REPORT INFORMATION
  Report Type: 
  Country: None (occurrence: None)
  Receive Date: 20111031
  Receipt Date: 20111025
  Transmission Date: 20120403
  Serious: Yes (Hospitalization, Other)
  Sender: FDA-Public Use
  Company Number: BE-BAYER-200814157GPV

PATIENT
  Age: 53 Year
  Sex: Female

DRUGS (7)
  1. TRAZODONE HYDROCHLORIDE [Concomitant]
     Dosage: 50 MG, UNK
  2. ATENOLOL [Concomitant]
     Dosage: 100 MG, UNK
  3. AMLODIPINE [Concomitant]
     Dosage: 10 MG, UNK
  4. BETAFERON [Suspect]
     Indication: MULTIPLE SCLEROSIS
     Dosage: 250 ?G, QOD
     Route: 058
  5. CIPROFLOXACIN [Concomitant]
     Indication: URINARY TRACT INFECTION
  6. PROPRANOLOL [Concomitant]
     Indication: HYPERTENSION
  7. TETRAZEPAM [Concomitant]
     Dosage: 25 MG, UNK

REACTIONS (5)
  - HAEMATURIA [None]
  - RENAL FAILURE [None]
  - PROTEINURIA [None]
  - THROMBOTIC MICROANGIOPATHY [None]
  - BLOOD CREATININE INCREASED [None]
